FAERS Safety Report 8502199-4 (Version None)
Quarter: 2012Q2

REPORT INFORMATION
  Report Type: 
  Country: None (occurrence: None)
  Receive Date: 20120405
  Receipt Date: 20100907
  Transmission Date: 20120825
  Serious: Yes (Other)
  Sender: FDA-Public Use
  Company Number: PHHY2010US60311

PATIENT
  Age: 88 Year
  Sex: Female
  Weight: 60.3 kg

DRUGS (1)
  1. RECLAST [Suspect]
     Indication: OSTEOPOROSIS
     Dosage: 5 MG, IV INFUSION

REACTIONS (1)
  - BLOOD CREATININE INCREASED [None]
